FAERS Safety Report 7446051-4 (Version None)
Quarter: 2011Q2

REPORT INFORMATION
  Report Type: 
  Country: None (occurrence: None)
  Receive Date: 20110429
  Receipt Date: 20110426
  Transmission Date: 20111010
  Serious: Yes (Other)
  Sender: FDA-Public Use
  Company Number: US-PFIZER INC-2011058663

PATIENT
  Sex: Female
  Weight: 59 kg

DRUGS (8)
  1. LUMIGAN [Suspect]
     Indication: GLAUCOMA
     Dosage: UNK
     Dates: start: 20080101, end: 20080101
  2. VALIUM [Concomitant]
     Dosage: UNK
  3. TRAVATAN Z [Suspect]
     Indication: GLAUCOMA
     Dosage: UNK
     Dates: start: 20080101, end: 20080101
  4. PREMARIN [Concomitant]
     Dosage: UNK
  5. PROTONIX [Concomitant]
     Dosage: 40 MG, UNK
  6. NORCO [Concomitant]
     Dosage: 10/325 MG, 3 TO 4 TIMES A DAY
  7. XALATAN [Suspect]
     Indication: GLAUCOMA
     Dosage: 1 DROP IN EACH EYE ONCE A DAY
     Route: 047
     Dates: start: 20021201, end: 20080101
  8. HYDROMORPHONE [Concomitant]
     Dosage: 1 MG, 1X/DAY

REACTIONS (7)
  - EYE IRRITATION [None]
  - EYELID MARGIN CRUSTING [None]
  - SKIN BURNING SENSATION [None]
  - HEADACHE [None]
  - VISUAL ACUITY REDUCED [None]
  - PHOTOPHOBIA [None]
  - DRUG INEFFECTIVE [None]
